FAERS Safety Report 22168295 (Version 1)
Quarter: 2023Q2

REPORT INFORMATION
  Report Type: Spontaneous
  Country: US (occurrence: US)
  Receive Date: 20230403
  Receipt Date: 20230403
  Transmission Date: 20230722
  Serious: No
  Sender: FDA-Public Use
  Company Number: US-PFIZER INC-PV202300061021

PATIENT
  Age: 63 Year
  Sex: Female

DRUGS (2)
  1. CIBINQO [Interacting]
     Active Substance: ABROCITINIB
     Dosage: 100 MG
     Dates: start: 202303
  2. DUPIXENT [Interacting]
     Active Substance: DUPILUMAB
     Dosage: UNK

REACTIONS (1)
  - Drug interaction [Unknown]
